FAERS Safety Report 16539802 (Version 1)
Quarter: 2019Q3

REPORT INFORMATION
  Report Type: Spontaneous
  Country: US (occurrence: US)
  Receive Date: 20190524
  Receipt Date: 20190524
  Transmission Date: 20191004
  Serious: No
  Sender: FDA-Public Use
  Company Number: None

PATIENT
  Age: 73 Year
  Sex: Female
  Weight: 68.04 kg

DRUGS (3)
  1. FORTEO [Suspect]
     Active Substance: TERIPARATIDE
     Indication: FUNGAL INFECTION
     Route: 058
     Dates: start: 201904
  2. FORTEO [Suspect]
     Active Substance: TERIPARATIDE
     Indication: PRODUCT USED FOR UNKNOWN INDICATION
     Route: 058
     Dates: start: 201904
  3. FORTEO [Suspect]
     Active Substance: TERIPARATIDE
     Indication: COLITIS ULCERATIVE
     Route: 058
     Dates: start: 201904

REACTIONS (1)
  - Peripheral swelling [None]
